FAERS Safety Report 5848223-9 (Version None)
Quarter: 2008Q3

REPORT INFORMATION
  Report Type: 
  Country: None (occurrence: None)
  Receive Date: 20080818
  Receipt Date: 20080808
  Transmission Date: 20090109
  Serious: Yes (Hospitalization)
  Sender: FDA-Public Use
  Company Number: D0057856A

PATIENT
  Age: 74 Year
  Sex: Male
  Weight: 95 kg

DRUGS (7)
  1. FRAXIPARIN [Suspect]
     Dosage: 1ML SEE DOSAGE TEXT
     Route: 058
  2. LEXOTANIL [Suspect]
     Route: 048
  3. MARCUMAR [Suspect]
     Route: 048
  4. NEUROCIL [Suspect]
     Dosage: 50MG PER DAY
     Route: 048
  5. SEROXAT [Suspect]
     Route: 065
  6. VITAMIN K TAB [Concomitant]
     Route: 042
  7. DALMADORM [Concomitant]
     Route: 065

REACTIONS (10)
  - CARDIOVASCULAR DISORDER [None]
  - DRUG TOXICITY [None]
  - EXCORIATION [None]
  - GENERAL PHYSICAL HEALTH DETERIORATION [None]
  - HAEMORRHAGE [None]
  - HYPERTENSION [None]
  - INTRA-ABDOMINAL HAEMORRHAGE [None]
  - MIOSIS [None]
  - SOMNOLENCE [None]
  - SUICIDE ATTEMPT [None]
